FAERS Safety Report 9801145 (Version 3)
Quarter: 2014Q1

REPORT INFORMATION
  Report Type: Report from Study
  Country: FR (occurrence: FR)
  Receive Date: 20140107
  Receipt Date: 20140325
  Transmission Date: 20141002
  Serious: Yes (Hospitalization)
  Sender: FDA-Public Use
  Company Number: FR-UCBSA-107434

PATIENT
  Age: 59 Year
  Sex: Male
  Weight: 58.5 kg

DRUGS (7)
  1. CIMZIA [Suspect]
     Indication: RHEUMATOID ARTHRITIS
     Route: 058
     Dates: start: 20131205
  2. METHOTREXATE [Concomitant]
     Indication: RHEUMATOID ARTHRITIS
     Route: 048
     Dates: start: 201102
  3. INSULIN [Concomitant]
     Indication: DIABETES MELLITUS
  4. ATENOLOL [Concomitant]
     Indication: HYPERTENSION
  5. METFORMINE [Concomitant]
     Indication: DIABETES MELLITUS
  6. CRESTOR [Concomitant]
     Indication: DYSLIPIDAEMIA
  7. NOVONORM [Concomitant]
     Indication: DIABETES MELLITUS

REACTIONS (1)
  - Colitis [Recovered/Resolved]
